FAERS Safety Report 7827556-0 (Version None)
Quarter: 2011Q4

REPORT INFORMATION
  Report Type: 
  Country: None (occurrence: None)
  Receive Date: 20111020
  Receipt Date: 20111013
  Transmission Date: 20120403
  Serious: Yes (Hospitalization, Other)
  Sender: FDA-Public Use
  Company Number: PHHY2011FR90743

PATIENT
  Age: 64 Year
  Sex: Female

DRUGS (11)
  1. HEPTAMINOL [Concomitant]
     Dosage: 2 DF, TID
  2. APOKINON [Concomitant]
     Dosage: 1.2 ML, UNK
  3. PAROXETINE HCL [Suspect]
     Indication: DEPRESSION
     Dosage: 20 MG, UNK
  4. MODOPAR [Concomitant]
     Dosage: 125 MG, QD
  5. GUTRON [Concomitant]
  6. STALEVO 100 [Suspect]
     Indication: PARKINSON'S DISEASE
     Dosage: 200/100/25 MG AT 8:00 AM, 200/75/18.75 MG AT 3:00 PM, 200/50/12.5 MG AT 7:00 PM
  7. STALEVO 100 [Suspect]
     Dosage: STALEVO TO 200/50/12.5 MG AT 7:00 AM, 9:30 AM AND 12:00 AM, 200/75/18.75 MG AT 3:00 PM AND 200/50/12
  8. OMEPRAZOLE [Concomitant]
     Dosage: 20 MG, QD
  9. ARICEPT [Concomitant]
     Dosage: 10 MG, QD
  10. LEVOTHYROXINE SODIUM [Concomitant]
     Dosage: 100 UG, QD
  11. DOMPERIDONE [Concomitant]
     Dosage: 1 DF, TID

REACTIONS (18)
  - DYSKINESIA [None]
  - HALLUCINATION [None]
  - COGNITIVE DISORDER [None]
  - HYPERTONIA [None]
  - APRAXIA [None]
  - DYSSTASIA [None]
  - FREEZING PHENOMENON [None]
  - PARKINSON'S DISEASE [None]
  - DYSTONIA [None]
  - CHOREA [None]
  - CHOKING [None]
  - FALL [None]
  - MUSCLE RIGIDITY [None]
  - GAIT DISTURBANCE [None]
  - DYSARTHRIA [None]
  - CEREBELLAR SYNDROME [None]
  - MUSCLE SPASTICITY [None]
  - DYSPHAGIA [None]
